FAERS Safety Report 6984253 (Version 3)
Quarter: 2014Q2

REPORT INFORMATION
  Report Type: Spontaneous
  Country: US (occurrence: US)
  Receive Date: 20090501
  Receipt Date: 20140409
  Transmission Date: 20141212
  Serious: Yes (Hospitalization)
  Sender: FDA-Public Use
  Company Number: US-ALEXION-A200800107

PATIENT
  Age: 70 Year
  Sex: Female

DRUGS (31)
  1. SOLIRIS [Suspect]
     Indication: PAROXYSMAL NOCTURNAL HAEMOGLOBINURIA
     Dosage: 600 MG, SINGLE
     Route: 042
     Dates: start: 20071004, end: 20071004
  2. SOLIRIS [Suspect]
     Dosage: 600 MG, SINGLE
     Route: 042
     Dates: start: 20071011, end: 20071011
  3. SOLIRIS [Suspect]
     Dosage: 600 MG, SINGLE
     Route: 042
     Dates: start: 20071018, end: 20071018
  4. SOLIRIS [Suspect]
     Dosage: 600 MG, SINGLE
     Route: 042
     Dates: start: 20071025, end: 20071025
  5. SOLIRIS [Suspect]
     Dosage: 900 MG, SINGLE
     Route: 042
     Dates: start: 20071101, end: 20071101
  6. SOLIRIS [Suspect]
     Dosage: 900 MG, SINGLE
     Route: 042
     Dates: start: 20071115, end: 20071115
  7. SOLIRIS [Suspect]
     Dosage: 900 MG, SINGLE
     Route: 042
     Dates: start: 20071129, end: 20071129
  8. SOLIRIS [Suspect]
     Dosage: 900 MG, SINGLE
     Route: 042
     Dates: start: 20071213, end: 20071213
  9. SOLIRIS [Suspect]
     Dosage: 900 MG, SINGLE
     Route: 042
     Dates: start: 20071227, end: 20071227
  10. SOLIRIS [Suspect]
     Dosage: 900 MG, SINGLE
     Route: 042
     Dates: start: 20080110, end: 20080110
  11. SOLIRIS [Suspect]
     Dosage: 900 MG, SINGLE
     Route: 042
     Dates: start: 20080124, end: 20080124
  12. SOLIRIS [Suspect]
     Dosage: 900 MG, SINGLE
     Route: 042
     Dates: start: 20080207, end: 20080207
  13. SOLIRIS [Suspect]
     Dosage: 900 MG, SINGLE
     Route: 042
     Dates: start: 20080221, end: 20080221
  14. SOLIRIS [Suspect]
     Dosage: 900 MG, SINGLE
     Route: 042
     Dates: start: 20080306, end: 20080306
  15. SOLIRIS [Suspect]
     Dosage: 900 MG, SINGLE
     Route: 042
     Dates: start: 20080322, end: 20080322
  16. SOLIRIS [Suspect]
     Dosage: 900 MG, SINGLE
     Route: 042
     Dates: start: 20080403, end: 20080403
  17. SOLIRIS [Suspect]
     Dosage: 600 MG, SINGLE
     Route: 042
     Dates: start: 20080503
  18. SOLIRIS [Suspect]
     Dosage: UNK
  19. GLIMEPIRIDE [Concomitant]
     Dosage: UNK, PRN
     Route: 048
  20. EXJADE [Concomitant]
     Dosage: UNK, QD
     Route: 048
     Dates: start: 20080218, end: 20080324
  21. VITAMIN C                          /00008001/ [Concomitant]
     Dosage: UNK, QD
     Route: 048
  22. CALCIUM D [Concomitant]
     Dosage: UNK, QD
     Route: 048
  23. NORVASC                            /00972401/ [Concomitant]
     Dosage: UNK, QD
     Route: 048
  24. LISINOPRIL [Concomitant]
     Dosage: UNK, QD
     Route: 048
  25. MULTIVITAMIN                       /00831701/ [Concomitant]
     Dosage: UNK, QD
     Route: 048
  26. PREDNISONE [Concomitant]
     Dosage: 2.5 MG, QD
     Route: 048
  27. ATENOLOL [Concomitant]
     Indication: HYPERTENSION
     Dosage: UNK, QD
     Route: 048
  28. ARANESP [Concomitant]
     Dosage: 300 MG, EVERY OTHER WEEKLY
  29. SIMVASTATIN [Concomitant]
     Route: 048
  30. BLOOD TRANSFUSION, AUXILIARY PRODUCTS [Concomitant]
     Dosage: UNK, SINGLE
     Dates: start: 20080415, end: 20080415
  31. REVLIMID [Suspect]

REACTIONS (16)
  - Transfusion reaction [Recovered/Resolved]
  - Transfusion [Unknown]
  - Haemolysis [Unknown]
  - Coombs test positive [Unknown]
  - Blood lactate dehydrogenase increased [Recovering/Resolving]
  - Haemoglobin decreased [Unknown]
  - Pyrexia [Unknown]
  - Diarrhoea [Unknown]
  - Splenomegaly [Unknown]
  - Feeling abnormal [Unknown]
  - Hypersomnia [Unknown]
  - Dyspnoea [Unknown]
  - Abdominal pain [Unknown]
  - Dysphagia [Unknown]
  - Asthenia [Unknown]
  - Fatigue [Unknown]
